FAERS Safety Report 6101521-6 (Version None)
Quarter: 2009Q1

REPORT INFORMATION
  Report Type: 
  Country: None (occurrence: None)
  Receive Date: 20090304
  Receipt Date: 20090223
  Transmission Date: 20090719
  Serious: Yes (Other)
  Sender: FDA-Public Use
  Company Number: FR-BAYER-200914647GPV

PATIENT
  Age: 34 Year
  Sex: Female

DRUGS (2)
  1. MIRENA [Suspect]
     Indication: ENDOMETRIOSIS
     Route: 015
     Dates: start: 20070501
  2. IMPLANON [Suspect]
     Indication: ENDOMETRIOSIS
     Route: 058
     Dates: start: 20071221, end: 20081015

REACTIONS (18)
  - ACNE [None]
  - ALOPECIA [None]
  - ASTHENIA [None]
  - BLOOD PRESSURE INCREASED [None]
  - DEPRESSION [None]
  - FATIGUE [None]
  - FLATULENCE [None]
  - GASTROINTESTINAL DISORDER [None]
  - HEADACHE [None]
  - HOT FLUSH [None]
  - HYPERTHERMIA [None]
  - IMPLANT SITE HAEMATOMA [None]
  - IMPLANT SITE REACTION [None]
  - NAUSEA [None]
  - PAIN [None]
  - PALPITATIONS [None]
  - VERTIGO [None]
  - WEIGHT DECREASED [None]
